FAERS Safety Report 18226194 (Version 1)
Quarter: 2020Q3

REPORT INFORMATION
  Report Type: Spontaneous
  Country: US (occurrence: US)
  Receive Date: 20200902
  Receipt Date: 20200902
  Transmission Date: 20201103
  Serious: Yes (Death)
  Sender: FDA-Public Use
  Company Number: None

PATIENT
  Age: 84 Year
  Sex: Female
  Weight: 46.7 kg

DRUGS (11)
  1. AZITHROMYCIN 500MG IVPB Q24H [Concomitant]
     Dates: start: 20200826
  2. CEFEPIME 1GM Q8H IVPB [Concomitant]
     Dates: start: 20200826
  3. REMDESIVIR. [Suspect]
     Active Substance: REMDESIVIR
     Indication: COVID-19
     Route: 040
     Dates: start: 20200825, end: 20200826
  4. METRONIDAZOLE 500MG IVPB Q8H [Concomitant]
     Dates: start: 20200826
  5. DEXAMETHASONE 6MG IVP DAILY [Concomitant]
     Dates: start: 20200826
  6. AMLODIPINE 5MG DAILY [Concomitant]
     Dates: start: 20200826
  7. HEPARIN 5000U SQ Q12H [Concomitant]
     Dates: start: 20200826
  8. ZINC SULF 220MG DAILY [Concomitant]
     Dates: start: 20200826
  9. ASPIRIN 81MG DAILY [Concomitant]
     Active Substance: ASPIRIN
     Dates: start: 20200826
  10. QUETIAPINE 25MG QHS [Concomitant]
     Dates: start: 20200826
  11. ASCORBIC ACID 1500MG TID [Concomitant]
     Dates: start: 20200826

REACTIONS (1)
  - Death [None]

NARRATIVE: CASE EVENT DATE: 20200827
